FAERS Safety Report 8570905-9 (Version None)
Quarter: 2012Q3

REPORT INFORMATION
  Report Type: 
  Country: None (occurrence: None)
  Receive Date: 20120806
  Receipt Date: 20120730
  Transmission Date: 20120928
  Serious: No
  Sender: FDA-Public Use
  Company Number: US-BIOGENIDEC-2011BI026809

PATIENT
  Sex: Male

DRUGS (2)
  1. TYSABRI [Suspect]
     Route: 042
     Dates: start: 20111219
  2. TYSABRI [Suspect]
     Indication: MULTIPLE SCLEROSIS
     Route: 042
     Dates: start: 20110715, end: 20110812

REACTIONS (18)
  - FALL [None]
  - TOOTH FRACTURE [None]
  - AUTOMATIC BLADDER [None]
  - MOBILITY DECREASED [None]
  - PYREXIA [None]
  - DYSURIA [None]
  - URINARY INCONTINENCE [None]
  - LOSS OF CONTROL OF LEGS [None]
  - BLADDER SPASM [None]
  - INFUSION SITE HAEMATOMA [None]
  - URINARY TRACT INFECTION [None]
  - WHITE BLOOD CELLS URINE [None]
  - GAIT DISTURBANCE [None]
  - MULTIPLE SCLEROSIS RELAPSE [None]
  - MUSCLE SPASTICITY [None]
  - LIP INJURY [None]
  - MULTIPLE SCLEROSIS [None]
  - MICTURITION URGENCY [None]
